FAERS Safety Report 16544524 (Version 1)
Quarter: 2019Q3

REPORT INFORMATION
  Report Type: Report from Study
  Country: BE (occurrence: BE)
  Receive Date: 20190709
  Receipt Date: 20190709
  Transmission Date: 20191004
  Serious: Yes (Death)
  Sender: FDA-Public Use
  Company Number: PHHY2018BE002279

PATIENT
  Age: 42 Year
  Sex: Female

DRUGS (1)
  1. SANDOSTATIN LAR DEPOT [Suspect]
     Active Substance: OCTREOTIDE ACETATE
     Indication: DUMPING SYNDROME
     Dosage: 30 MG, QMO
     Route: 030

REACTIONS (4)
  - Death [Fatal]
  - Product use in unapproved indication [Unknown]
  - Nodule [Unknown]
  - Fluid retention [Unknown]

NARRATIVE: CASE EVENT DATE: 20190703
